FAERS Safety Report 10265659 (Version 1)
Quarter: 2014Q2

REPORT INFORMATION
  Report Type: Spontaneous
  Country: US (occurrence: US)
  Receive Date: 20140627
  Receipt Date: 20140627
  Transmission Date: 20141212
  Serious: Yes (Other)
  Sender: FDA-Public Use
  Company Number: US-B.I. PHARMACEUTICALS,INC./RIDGEFIELD-2014-BI-28869BP

PATIENT
  Age: 89 Year
  Sex: Male
  Weight: 59 kg

DRUGS (12)
  1. PRADAXA [Suspect]
     Indication: ATRIAL FIBRILLATION
     Dosage: 300 MG
     Route: 048
     Dates: start: 2011, end: 201405
  2. PRADAXA [Suspect]
     Dosage: 150 MG
     Route: 048
     Dates: start: 201405
  3. HYDRALAZINE [Concomitant]
     Indication: HYPERTENSION
     Dosage: 20 MG
     Route: 048
  4. METOPROLOL [Concomitant]
     Indication: HYPERTENSION
     Dosage: 100 MG
     Route: 048
  5. ECOTRIN [Concomitant]
     Dosage: 81 MG
     Route: 048
  6. CENTRUM SILVER [Concomitant]
     Indication: VITAMIN SUPPLEMENTATION
     Route: 048
  7. AREDS 2 [Concomitant]
     Indication: VITAMIN SUPPLEMENTATION
     Route: 048
  8. AREDS 2 [Concomitant]
     Indication: MACULAR DEGENERATION
  9. ISOSORBIDE [Concomitant]
     Dosage: 30 MG
     Route: 048
  10. FUROSEMIDE [Concomitant]
     Indication: FLUID RETENTION
     Dosage: 40 MG
     Route: 048
  11. DIGOXIN [Concomitant]
     Dosage: 0.125 MG
     Route: 048
  12. ATORVASTATIN [Concomitant]
     Indication: BLOOD CHOLESTEROL INCREASED
     Dosage: 20 MG
     Route: 048

REACTIONS (1)
  - Macular degeneration [Not Recovered/Not Resolved]
